FAERS Safety Report 14826170 (Version 1)
Quarter: 2018Q2

REPORT INFORMATION
  Report Type: Spontaneous
  Country: US (occurrence: US)
  Receive Date: 20180403
  Receipt Date: 20180403
  Transmission Date: 20180711
  Serious: Yes (Death, Hospitalization)
  Sender: FDA-Public Use
  Company Number: None

PATIENT
  Age: 77 Year
  Sex: Female

DRUGS (1)
  1. FENTANYL (OR PAIN MEDICATION IN GENERAL) [Suspect]
     Active Substance: FENTANYL
     Indication: SURGERY
     Route: 058
     Dates: start: 20180214, end: 20180216

REACTIONS (1)
  - Chronic obstructive pulmonary disease [None]

NARRATIVE: CASE EVENT DATE: 20180216
